FAERS Safety Report 15431730 (Version 3)
Quarter: 2018Q4

REPORT INFORMATION
  Report Type: Spontaneous
  Country: LV (occurrence: LV)
  Receive Date: 20180926
  Receipt Date: 20181022
  Transmission Date: 20190204
  Serious: Yes (Other)
  Sender: FDA-Public Use
  Company Number: LV-MYLANLABS-2018M1069940

PATIENT
  Age: 72 Year
  Sex: Male

DRUGS (32)
  1. TRAMADOL. [Suspect]
     Active Substance: TRAMADOL
     Indication: POSTOPERATIVE ANALGESIA
     Dosage: 100 MG, BID
  2. CEFAZOLIN [Suspect]
     Active Substance: CEFAZOLIN
     Indication: POST PROCEDURAL COMPLICATION
     Dosage: 3000 MG, QD
     Route: 042
     Dates: start: 20101124
  3. CHLORHEXIDINE [Concomitant]
     Active Substance: CHLORHEXIDINE
     Indication: PRODUCT USED FOR UNKNOWN INDICATION
     Dosage: UNK
     Route: 065
  4. FLUCONAZOLE. [Concomitant]
     Active Substance: FLUCONAZOLE
     Indication: POST PROCEDURAL COMPLICATION
  5. BETALOC ZOK [Concomitant]
     Active Substance: METOPROLOL SUCCINATE
     Indication: PRODUCT USED FOR UNKNOWN INDICATION
     Dosage: UNK
     Route: 065
  6. GELOFUSINE                         /00523001/ [Concomitant]
     Active Substance: POLYGELINE\POTASSIUM CHLORIDE\SODIUM CHLORIDE
     Indication: PRODUCT USED FOR UNKNOWN INDICATION
     Dosage: 500 ML, UNK
     Route: 065
  7. DIAZEPAM. [Concomitant]
     Active Substance: DIAZEPAM
     Indication: PRODUCT USED FOR UNKNOWN INDICATION
     Dosage: 0.5% - 5ML
     Route: 042
  8. DIAZEPAM. [Concomitant]
     Active Substance: DIAZEPAM
     Dosage: UNK
     Route: 065
  9. AMPICILLIN [Suspect]
     Active Substance: AMPICILLIN
     Indication: NECROTISING FASCIITIS
  10. TRAMADOL. [Suspect]
     Active Substance: TRAMADOL
     Indication: ANALGESIC THERAPY
  11. CEFTRIAXONE. [Suspect]
     Active Substance: CEFTRIAXONE
     Indication: POST PROCEDURAL COMPLICATION
     Dosage: UNK
     Route: 065
  12. GLUCOSE                            /00203503/ [Concomitant]
     Active Substance: DEXTROSE MONOHYDRATE
     Indication: PRODUCT USED FOR UNKNOWN INDICATION
     Dosage: 500 ML, UNK
  13. CEFAZOLIN [Suspect]
     Active Substance: CEFAZOLIN
     Dosage: 1 G, QD
     Route: 042
  14. DALACIN C                          /00166001/ [Suspect]
     Active Substance: CLINDAMYCIN PHOSPHATE
     Indication: NECROTISING FASCIITIS
     Dosage: 1200 MG, BID
  15. CORDARONE [Concomitant]
     Active Substance: AMIODARONE HYDROCHLORIDE
     Indication: PRODUCT USED FOR UNKNOWN INDICATION
     Dosage: UNK
     Route: 065
  16. FLUCONAZOLE. [Concomitant]
     Active Substance: FLUCONAZOLE
     Indication: POST PROCEDURAL COMPLICATION
     Dosage: UNK
  17. DEXAMETHASONE. [Concomitant]
     Active Substance: DEXAMETHASONE
     Dosage: UNK
     Route: 065
  18. IBUPROFEN. [Concomitant]
     Active Substance: IBUPROFEN
     Indication: PRODUCT USED FOR UNKNOWN INDICATION
     Dosage: 400 MG, TID
  19. AMOKSIKLAV                         /00756801/ [Concomitant]
     Indication: PRODUCT USED FOR UNKNOWN INDICATION
     Dosage: 1 DF, TID
  20. TRAMADOL. [Suspect]
     Active Substance: TRAMADOL
     Indication: PAIN
     Dosage: 200 MG, QD
     Route: 030
     Dates: start: 20101127
  21. CEFTRIAXONE. [Suspect]
     Active Substance: CEFTRIAXONE
     Indication: NECROTISING FASCIITIS
  22. GENTAMICIN. [Suspect]
     Active Substance: GENTAMICIN
     Indication: POST PROCEDURAL COMPLICATION
     Dosage: UNK
     Route: 065
  23. DEXAMETHASONE. [Concomitant]
     Active Substance: DEXAMETHASONE
     Indication: PRODUCT USED FOR UNKNOWN INDICATION
     Dosage: 12 MG, UNK
     Route: 042
  24. DICLOFENAC [Suspect]
     Active Substance: DICLOFENAC
     Indication: POST PROCEDURAL COMPLICATION
     Dosage: 75 MG/ML, BID
     Route: 042
  25. CEFAZOLIN [Suspect]
     Active Substance: CEFAZOLIN
     Dosage: 1000 MG, TID
     Route: 042
  26. METROGYL /00012501/ [Suspect]
     Active Substance: METRONIDAZOLE
     Indication: POST PROCEDURAL COMPLICATION
     Dosage: 15 MG/KG, Q8H
     Route: 065
  27. DALACIN C /00166001/ [Suspect]
     Active Substance: CLINDAMYCIN PHOSPHATE
     Indication: POST PROCEDURAL COMPLICATION
     Dosage: 2400 MG, QD
     Route: 065
  28. FLUCONAZOLE. [Concomitant]
     Active Substance: FLUCONAZOLE
     Indication: NECROTISING FASCIITIS
  29. SODIUM CHLORIDE. [Concomitant]
     Active Substance: SODIUM CHLORIDE
     Indication: PRODUCT USED FOR UNKNOWN INDICATION
     Dosage: 1000 ML, UNK
  30. AMPICILLIN [Suspect]
     Active Substance: AMPICILLIN
     Indication: POST PROCEDURAL COMPLICATION
     Dosage: UNK
     Route: 065
  31. GENTAMICIN. [Suspect]
     Active Substance: GENTAMICIN
     Indication: NECROTISING FASCIITIS
  32. METROGYL                           /00012501/ [Suspect]
     Active Substance: METRONIDAZOLE
     Indication: NECROTISING FASCIITIS

REACTIONS (4)
  - Duodenal ulcer [Unknown]
  - Gastric mucosa erythema [Unknown]
  - Gastrooesophageal sphincter insufficiency [Unknown]
  - Enterocolitis [Unknown]
